FAERS Safety Report 8471777 (Version 2)
Quarter: 2012Q4

REPORT INFORMATION
  Report Type: 
  Country: GB (occurrence: GB)
  Receive Date: 20120322
  Receipt Date: 20121219
  Transmission Date: 20130627
  Serious: Yes (Other)
  Sender: FDA-Public Use
  Company Number: PHHY2012GB022636

PATIENT
  Age: 30 Year
  Sex: Male
  Weight: 78 kg

DRUGS (3)
  1. CIPROFLOXACIN [Suspect]
     Indication: URINARY TRACT INFECTION
     Route: 048
     Dates: start: 2010
  2. CIPROFLOXACIN [Suspect]
     Dosage: 500 mg, BID
     Route: 048
     Dates: start: 20120217, end: 20120229
  3. DOXYCYCLINE [Concomitant]
     Indication: URINARY TRACT INFECTION
     Dosage: 100 mg, BID
     Dates: start: 20120217, end: 20120229

REACTIONS (3)
  - Optic neuritis [Recovered/Resolved]
  - Eye pain [Recovered/Resolved]
  - Visual impairment [Recovered/Resolved]
